FAERS Safety Report 12595416 (Version 1)
Quarter: 2016Q3

REPORT INFORMATION
  Report Type: Spontaneous
  Country: US (occurrence: US)
  Receive Date: 20160726
  Receipt Date: 20160726
  Transmission Date: 20161109
  Serious: Yes (Other)
  Sender: FDA-Public Use
  Company Number: US-BAYER-2016-143419

PATIENT
  Age: 17 Year
  Sex: Female

DRUGS (1)
  1. COPPERTONE KIDS SPF 70 PLUS [Suspect]
     Active Substance: AVOBENZONE\HOMOSALATE\OCTISALATE\OCTOCRYLENE\OXYBENZONE
     Indication: PROPHYLAXIS AGAINST SOLAR RADIATION
     Dosage: 1 DF, Q1HR
     Route: 061
     Dates: start: 20160713, end: 20160713

REACTIONS (1)
  - Burns first degree [None]

NARRATIVE: CASE EVENT DATE: 20160713
